FAERS Safety Report 7029274-8 (Version None)
Quarter: 2010Q3

REPORT INFORMATION
  Report Type: 
  Country: None (occurrence: None)
  Receive Date: 20100924
  Receipt Date: 20091116
  Transmission Date: 20110219
  Serious: Yes (Hospitalization)
  Sender: FDA-Public Use
  Company Number: WAES 0911USA02661

PATIENT
  Age: 80 Year
  Sex: Female

DRUGS (6)
  1. VYTORIN [Suspect]
     Indication: BLOOD CHOLESTEROL INCREASED
     Dosage: 10-80 MG/DAILY/PO
     Route: 048
     Dates: start: 20070101
  2. COUMADIN [Concomitant]
  3. FOSAMAX [Concomitant]
  4. TRAVATAN [Concomitant]
  5. ATENOLOL [Concomitant]
  6. MAGNESIUM (UNSPECIFIED) [Concomitant]

REACTIONS (1)
  - MYALGIA [None]
